FAERS Safety Report 17278503 (Version 1)
Quarter: 2020Q1

REPORT INFORMATION
  Report Type: Spontaneous
  Country: US (occurrence: US)
  Receive Date: 20200116
  Receipt Date: 20200116
  Transmission Date: 20200409
  Serious: Yes (Hospitalization)
  Sender: FDA-Public Use
  Company Number: None

PATIENT
  Age: 56 Year
  Sex: Female

DRUGS (6)
  1. METHOTREXATE TAB 2.5 MG [Concomitant]
  2. HUMIRA [Suspect]
     Active Substance: ADALIMUMAB
     Indication: RHEUMATOID ARTHRITIS
     Dosage: ?          OTHER FREQUENCY:ON DAY 1;?
     Route: 058
     Dates: start: 20180321
  3. VITAMIN B-12 SUB 1000 MCG [Concomitant]
  4. FOLIC ACID TAB 1 MG [Concomitant]
  5. MARINOL CAP 5 MG [Concomitant]
  6. CIPROFLOXACIN TAB 500 MG [Concomitant]
     Active Substance: CIPROFLOXACIN

REACTIONS (1)
  - Rectal abscess [None]

NARRATIVE: CASE EVENT DATE: 20191231
